FAERS Safety Report 5088443-7 (Version None)
Quarter: 2006Q3

REPORT INFORMATION
  Report Type: 
  Country: None (occurrence: None)
  Receive Date: 20060821
  Receipt Date: 20060802
  Transmission Date: 20061208
  Serious: Yes (Other)
  Sender: FDA-Public Use
  Company Number: CHPA2006US07619

PATIENT
  Age: 69 Year
  Sex: Female
  Weight: 61.2 kg

DRUGS (4)
  1. NICOTINE [Suspect]
     Indication: SMOKING CESSATION THERAPY
     Dosage: 14 MG; 7 MG; 14 MG, QD, TRANSDERMAL
     Route: 062
  2. NICOTINE [Suspect]
     Indication: SMOKING CESSATION THERAPY
     Dosage: 14 MG; 7 MG; 14 MG, QD, TRANSDERMAL
     Route: 062
  3. NICOTINE [Suspect]
     Indication: SMOKING CESSATION THERAPY
     Dosage: 14 MG; 7 MG; 14 MG, QD, TRANSDERMAL
     Route: 062
     Dates: start: 20060501
  4. ANTIDEPRESSANTS (NO INGREDIENTS/SUBSTANCES) [Concomitant]

REACTIONS (4)
  - INAPPROPRIATE SCHEDULE OF DRUG ADMINISTRATION [None]
  - NICOTINE DEPENDENCE [None]
  - RASH ERYTHEMATOUS [None]
  - RASH PAPULAR [None]
